FAERS Safety Report 7649703-6 (Version None)
Quarter: 2011Q3

REPORT INFORMATION
  Report Type: 
  Country: None (occurrence: None)
  Receive Date: 20110727
  Receipt Date: 20110711
  Transmission Date: 20111222
  Serious: Yes (Death)
  Sender: FDA-Public Use
  Company Number: UTC-008520

PATIENT
  Age: 44 Year
  Sex: Male

DRUGS (4)
  1. TYVASO [Suspect]
     Indication: COR PULMONALE CHRONIC
     Dosage: 216 MCG (54 MCG,4 IN 1 D),INHALATION
     Route: 055
     Dates: start: 20100823
  2. DIURETICS (DIURETICS) [Concomitant]
  3. TRACLEER [Concomitant]
  4. REVATIO [Concomitant]

REACTIONS (1)
  - DEATH [None]
